FAERS Safety Report 25524320 (Version 1)
Quarter: 2025Q3

REPORT INFORMATION
  Report Type: Spontaneous
  Country: CN (occurrence: CN)
  Receive Date: 20250707
  Receipt Date: 20250707
  Transmission Date: 20251020
  Serious: Yes (Other)
  Sender: NOVARTIS
  Company Number: CN-002147023-NVSC2025CN106758

PATIENT

DRUGS (2)
  1. SACUBITRIL\VALSARTAN [Suspect]
     Active Substance: SACUBITRIL\VALSARTAN
     Indication: Cardiac failure chronic
     Dosage: 100 MG, BID (THE INITIAL DOSAGE OF THE DRUG WAS 100 MG EACH TIME, TWICE A DAY. AFTER TWO  WEEKS, THE
     Route: 048
  2. METOPROLOL [Concomitant]
     Active Substance: METOPROLOL
     Indication: Cardiac failure chronic
     Dosage: 6.25 MG, BID  (DRUG WAS GIVEN TO THE PATIENTS ORALLY ON AN EMPTY STOMACH, WITH AN INITIAL DOSE OF 6.
     Route: 048

REACTIONS (1)
  - Cardiac failure acute [Unknown]
